FAERS Safety Report 10661357 (Version 1)
Quarter: 2014Q4

REPORT INFORMATION
  Report Type: Spontaneous
  Country: US (occurrence: US)
  Receive Date: 20141218
  Receipt Date: 20141218
  Transmission Date: 20150529
  Serious: Yes (Other)
  Sender: FDA-Public Use
  Company Number: US-JNJFOC-20141206594

PATIENT
  Sex: Female
  Weight: 86.18 kg

DRUGS (4)
  1. ESTER C [Concomitant]
     Indication: SURGERY
     Route: 065
  2. OYSTER SHELL CALCIUM WITH VITAMIN D [Concomitant]
     Active Substance: CALCIUM\CHOLECALCIFEROL
     Indication: MINERAL SUPPLEMENTATION
     Route: 065
  3. CONCERTA [Suspect]
     Active Substance: METHYLPHENIDATE HYDROCHLORIDE
     Indication: DISTURBANCE IN ATTENTION
     Dosage: INITIATED IN 2008 OR 2009
     Route: 048
  4. CENTRUM SILVER [Concomitant]
     Active Substance: VITAMINS
     Indication: VITAMIN SUPPLEMENTATION
     Dosage: FREQUENCY: DAILY
     Route: 048

REACTIONS (2)
  - Drug dose omission [Unknown]
  - Breast cancer [Unknown]

NARRATIVE: CASE EVENT DATE: 2010
